FAERS Safety Report 5190318-X (Version None)
Quarter: 2006Q4

REPORT INFORMATION
  Report Type: 
  Country: None (occurrence: None)
  Receive Date: 20061222
  Receipt Date: 20060630
  Transmission Date: 20070319
  Serious: No
  Sender: FDA-Public Use
  Company Number: US-AMGEN-KDL184852

PATIENT
  Sex: Male

DRUGS (12)
  1. ARANESP [Suspect]
     Indication: RENAL FAILURE CHRONIC
  2. EPOGEN [Suspect]
  3. VICODIN [Concomitant]
  4. PREDNISONE TAB [Concomitant]
  5. FUROSEMIDE INTENSOL [Concomitant]
  6. ATENOLOL [Concomitant]
  7. MYCOPHENOLATE MOFETIL [Concomitant]
  8. SIMVASTATIN [Concomitant]
  9. ENALAPRIL MALEATE [Concomitant]
  10. RAPAMUNE [Concomitant]
  11. UNSPECIFIED MEDICATION [Concomitant]
  12. ERGOCALCIFEROL [Concomitant]

REACTIONS (2)
  - BLOOD IRON DECREASED [None]
  - HAEMOGLOBIN DECREASED [None]
